FAERS Safety Report 12337892 (Version 1)
Quarter: 2016Q2

REPORT INFORMATION
  Report Type: Spontaneous
  Country: GB (occurrence: GB)
  Receive Date: 20160505
  Receipt Date: 20160505
  Transmission Date: 20160815
  Serious: Yes (Other)
  Sender: FDA-Public Use
  Company Number: GB-BIOGEN-2016BI00232840

PATIENT
  Sex: Female

DRUGS (1)
  1. PLEGRIDY [Suspect]
     Active Substance: PEGINTERFERON BETA-1A
     Indication: MULTIPLE SCLEROSIS
     Route: 058
     Dates: start: 20160330

REACTIONS (6)
  - Fear [Unknown]
  - Thyroid function test abnormal [Unknown]
  - Depressed mood [Unknown]
  - Suicidal ideation [Unknown]
  - Fatigue [Unknown]
  - Scar [Unknown]
